FAERS Safety Report 7276558-4 (Version None)
Quarter: 2011Q1

REPORT INFORMATION
  Report Type: 
  Country: None (occurrence: None)
  Receive Date: 20110204
  Receipt Date: 20110128
  Transmission Date: 20110831
  Serious: Yes (Other)
  Sender: FDA-Public Use
  Company Number: US-PFIZER INC-2011020973

PATIENT
  Sex: Female
  Weight: 77.098 kg

DRUGS (4)
  1. PREMPRO [Suspect]
     Indication: HOT FLUSH
     Dosage: 0.3 MG, DAILY
     Route: 048
     Dates: start: 20090401, end: 20101201
  2. NEURONTIN [Suspect]
     Indication: NERVOUS SYSTEM DISORDER
     Dosage: 300 MG, DAILY
     Route: 048
  3. GABAPENTIN [Suspect]
     Indication: NERVOUS SYSTEM DISORDER
     Dosage: 300 MG, DAILY
  4. IBUPROFEN [Concomitant]
     Dosage: UNK

REACTIONS (3)
  - DISORIENTATION [None]
  - HOT FLUSH [None]
  - DIZZINESS [None]
